FAERS Safety Report 7333206-2 (Version None)
Quarter: 2011Q1

REPORT INFORMATION
  Report Type: 
  Country: None (occurrence: None)
  Receive Date: 20110304
  Receipt Date: 20110223
  Transmission Date: 20110831
  Serious: Yes (Other)
  Sender: FDA-Public Use
  Company Number: US-JNJFOC-20101102898

PATIENT
  Sex: Female

DRUGS (6)
  1. ACIPHEX [Concomitant]
  2. STELARA [Suspect]
     Route: 058
  3. GABAPENTIN [Concomitant]
  4. CALCIUM [Concomitant]
  5. STELARA [Suspect]
     Indication: PSORIASIS
     Route: 058
  6. ZANAFLEX [Concomitant]

REACTIONS (2)
  - ABDOMINAL DISCOMFORT [None]
  - COGNITIVE DISORDER [None]
